FAERS Safety Report 6011472-3 (Version None)
Quarter: 2008Q4

REPORT INFORMATION
  Report Type: 
  Country: None (occurrence: None)
  Receive Date: 20081218
  Receipt Date: 20071210
  Transmission Date: 20090506
  Serious: No
  Sender: FDA-Public Use
  Company Number: US-ABBOTT-07P-163-0428190-00

PATIENT
  Sex: Female
  Weight: 70.37 kg

DRUGS (1)
  1. MERIDIA [Suspect]
     Indication: WEIGHT CONTROL
     Route: 048
     Dates: start: 20071001, end: 20071101

REACTIONS (2)
  - AGITATION [None]
  - HALLUCINATION [None]
